FAERS Safety Report 10449279 (Version 1)
Quarter: 2014Q3

REPORT INFORMATION
  Report Type: Spontaneous
  Country: GB (occurrence: None)
  Receive Date: 20140910
  Receipt Date: 20140910
  Transmission Date: 20150326
  Serious: Yes (Life-Threatening, Hospitalization)
  Sender: FDA-Public Use
  Company Number: CC400229680

PATIENT
  Age: 38 Year
  Sex: Female

DRUGS (3)
  1. LABETALOL 200MG [Concomitant]
  2. 0.9% SODIUM CHLORIDE [Suspect]
     Active Substance: SODIUM CHLORIDE
     Indication: URINE OUTPUT DECREASED
     Dosage: 500 ML OVER 1HR IV
     Route: 042
  3. 0.9% SODIUM CHLORIDE [Suspect]
     Active Substance: SODIUM CHLORIDE
     Indication: POST PROCEDURAL COMPLICATION
     Dosage: 500 ML OVER 1HR IV
     Route: 042

REACTIONS (7)
  - Acute pulmonary oedema [None]
  - Left atrial dilatation [None]
  - Cardiac arrest [None]
  - Left ventricular hypertrophy [None]
  - Mitral valve incompetence [None]
  - Systolic dysfunction [None]
  - Hypertension [None]
